FAERS Safety Report 18166687 (Version 1)
Quarter: 2020Q3

REPORT INFORMATION
  Report Type: Spontaneous
  Country: US (occurrence: US)
  Receive Date: 20200819
  Receipt Date: 20200819
  Transmission Date: 20201103
  Serious: No
  Sender: FDA-Public Use
  Company Number: US-ELI_LILLY_AND_COMPANY-US202008005493

PATIENT
  Age: 73 Year
  Sex: Female

DRUGS (3)
  1. HUMULIN R [Suspect]
     Active Substance: INSULIN HUMAN
     Indication: TYPE 2 DIABETES MELLITUS
     Dosage: 10 U, PRN , USUALLY TAKES TWICE DAILY (IN THE MORNING AND NIGHT)
     Route: 058
     Dates: start: 201906
  2. HUMULIN R [Suspect]
     Active Substance: INSULIN HUMAN
     Dosage: 6 U, UNKNOWN (5 TO 6 UNIT)
     Route: 058
  3. HUMULIN R [Suspect]
     Active Substance: INSULIN HUMAN
     Dosage: 10 U, PRN , USUALLY TAKES TWICE DAILY (IN THE MORNING AND NIGHT)
     Route: 058

REACTIONS (5)
  - Dizziness [Not Recovered/Not Resolved]
  - Hypersomnia [Unknown]
  - Hypersensitivity [Unknown]
  - Wrong technique in product usage process [Unknown]
  - Blood glucose increased [Not Recovered/Not Resolved]

NARRATIVE: CASE EVENT DATE: 202007
